FAERS Safety Report 9741986 (Version 1)
Quarter: 2013Q4

REPORT INFORMATION
  Report Type: Spontaneous
  Country: US (occurrence: US)
  Receive Date: 20131210
  Receipt Date: 20131210
  Transmission Date: 20140711
  Serious: Yes (Death)
  Sender: FDA-Public Use
  Company Number: US-PFIZER INC-2013349438

PATIENT
  Age: 34 Year
  Sex: Female

DRUGS (1)
  1. SUTENT [Suspect]
     Indication: NEUROENDOCRINE CARCINOMA
     Dosage: 12.5 MG, 2X/DAY

REACTIONS (2)
  - Disease progression [Fatal]
  - Neuroendocrine carcinoma [Fatal]
